FAERS Safety Report 9962187 (Version 3)
Quarter: 2014Q2

REPORT INFORMATION
  Report Type: Spontaneous
  Country: US (occurrence: US)
  Receive Date: 20140305
  Receipt Date: 20140612
  Transmission Date: 20141212
  Serious: Yes (Other)
  Sender: FDA-Public Use
  Company Number: US-BAYER-2014-031117

PATIENT
  Age: 34 Year
  Sex: Female
  Weight: 58.96 kg

DRUGS (6)
  1. MIRENA [Suspect]
     Indication: CONTRACEPTION
     Dosage: 20 MCG/24HR, CONT
     Route: 015
     Dates: start: 20090113, end: 20121101
  2. FLAGYL [Concomitant]
  3. LORTAB [Concomitant]
  4. PYRIDIUM [Concomitant]
  5. FIORICET [Concomitant]
  6. MACROBID [Concomitant]

REACTIONS (7)
  - Bladder injury [None]
  - Pain [None]
  - Depression [None]
  - Pain [None]
  - Uterine perforation [None]
  - Injury [None]
  - Emotional distress [None]
